FAERS Safety Report 10971757 (Version 1)
Quarter: 2015Q1

REPORT INFORMATION
  Report Type: Report from Study
  Country: JP (occurrence: JP)
  Receive Date: 20150331
  Receipt Date: 20150331
  Transmission Date: 20150721
  Serious: Yes (Life-Threatening, Hospitalization)
  Sender: FDA-Public Use
  Company Number: JP-BAYER-200811814BYL

PATIENT
  Age: 77 Year
  Sex: Male
  Weight: 68 kg

DRUGS (14)
  1. MYOCOR [Concomitant]
     Indication: MYOCARDIAL INFARCTION
     Route: 055
     Dates: start: 20080725
  2. PLAVIX [Concomitant]
     Active Substance: CLOPIDOGREL BISULFATE
     Indication: ANGINA PECTORIS
  3. BAYASPIRIN [Concomitant]
     Active Substance: ASPIRIN
     Indication: ANGINA PECTORIS
     Route: 048
     Dates: start: 20080724
  4. GLUCOBAY [Concomitant]
     Active Substance: ACARBOSE
     Indication: DIABETES MELLITUS
     Dosage: BEFORE EVERY MEAL
     Route: 048
     Dates: start: 20080808
  5. CRAVIT [Concomitant]
     Active Substance: LEVOFLOXACIN
     Route: 048
     Dates: start: 20080830
  6. NEXAVAR [Suspect]
     Active Substance: SORAFENIB
     Indication: RENAL CELL CARCINOMA
     Dosage: 200 MG, BID
     Route: 048
     Dates: start: 20080725
  7. NEXAVAR [Suspect]
     Active Substance: SORAFENIB
     Indication: RENAL CELL CARCINOMA
     Dosage: 200 MG, BID (3-DAY ADMINISTRATION AND 1-DAY DRUG REST)
     Route: 048
  8. VITAMINS NOS [Concomitant]
     Active Substance: VITAMINS
     Indication: ANGINA PECTORIS
     Dosage: AFTER EVERY MEAL
     Route: 048
     Dates: start: 20080808
  9. PLAVIX [Concomitant]
     Active Substance: CLOPIDOGREL BISULFATE
     Indication: ANGINA PECTORIS
     Route: 048
     Dates: start: 20080724
  10. PRAVATIN [Concomitant]
     Active Substance: PRAVASTATIN SODIUM
     Indication: HYPERLIPIDAEMIA
     Dosage: AFTER DINNER
     Route: 048
     Dates: start: 20080808
  11. NEXAVAR [Suspect]
     Active Substance: SORAFENIB
     Indication: RENAL CELL CARCINOMA
     Dosage: 800 MG (DAILY DOSE), , ORAL
     Route: 048
     Dates: start: 200506
  12. GLIMICRON [Concomitant]
     Active Substance: GLICLAZIDE
     Indication: DIABETES MELLITUS
     Route: 048
     Dates: start: 20080808
  13. NEXAVAR [Suspect]
     Active Substance: SORAFENIB
     Indication: RENAL CELL CARCINOMA
     Dosage: 200 MG, BID
     Route: 048
     Dates: start: 20080514, end: 20080724
  14. PLAVIX [Concomitant]
     Active Substance: CLOPIDOGREL BISULFATE
     Indication: HYPERTENSION

REACTIONS (8)
  - Myocardial infarction [Recovered/Resolved]
  - Hyperglycaemia [None]
  - Hypertension [Recovering/Resolving]
  - Myocardial infarction [Recovered/Resolved]
  - Alopecia [None]
  - Diarrhoea [None]
  - Abdominal discomfort [None]
  - Dysphonia [None]

NARRATIVE: CASE EVENT DATE: 20080611
